FAERS Safety Report 7703734-6 (Version None)
Quarter: 2011Q3

REPORT INFORMATION
  Report Type: 
  Country: None (occurrence: None)
  Receive Date: 20110823
  Receipt Date: 20110811
  Transmission Date: 20111222
  Serious: Yes (Hospitalization, Other)
  Sender: FDA-Public Use
  Company Number: US-JNJFOC-20110807218

PATIENT
  Age: 48 Year
  Sex: Female
  Weight: 66.23 kg

DRUGS (1)
  1. LEUSTATIN [Suspect]
     Indication: HAIRY CELL LEUKAEMIA
     Route: 042
     Dates: start: 20110730, end: 20110805

REACTIONS (5)
  - PERIORBITAL OEDEMA [None]
  - CHRONIC SINUSITIS [None]
  - HEADACHE [None]
  - INTRACRANIAL PRESSURE INCREASED [None]
  - FEBRILE NEUTROPENIA [None]
